FAERS Safety Report 4828216-0 (Version None)
Quarter: 2005Q4

REPORT INFORMATION
  Report Type: 
  Country: None (occurrence: None)
  Receive Date: 20051115
  Receipt Date: 20040426
  Transmission Date: 20060501
  Serious: No
  Sender: FDA-Public Use
  Company Number: US-BRISTOL-MYERS SQUIBB COMPANY-12571378

PATIENT
  Age: 39 Year
  Sex: Female
  Weight: 73 kg

DRUGS (6)
  1. SUSTIVA [Suspect]
     Indication: HIV INFECTION
     Dosage: THERAPY ONGOING AT CONCEPTION.
     Route: 048
     Dates: start: 20010313, end: 20040217
  2. COMBIVIR [Suspect]
     Indication: HIV INFECTION
     Dosage: ONGOING AT CONCEPTION,  INTERRUPTED 2/29/2004, RESTARTED ON UNSPECIFIED DATE
     Route: 048
     Dates: start: 20010313
  3. VIRAMUNE [Suspect]
     Indication: HIV INFECTION
     Route: 048
     Dates: start: 20040217, end: 20040229
  4. TRIZIVIR [Suspect]
     Indication: HIV INFECTION
     Route: 048
     Dates: start: 20040229, end: 20040310
  5. VIREAD [Suspect]
     Indication: HIV INFECTION
     Route: 048
     Dates: start: 20040301, end: 20040625
  6. KALETRA [Suspect]
     Indication: HIV INFECTION
     Route: 048
     Dates: start: 20040625

REACTIONS (4)
  - NORMAL NEWBORN [None]
  - PAIN [None]
  - PREGNANCY [None]
  - RASH [None]
